FAERS Safety Report 9117161 (Version 1)
Quarter: 2013Q1

REPORT INFORMATION
  Report Type: Spontaneous
  Country: AU (occurrence: AU)
  Receive Date: 20130225
  Receipt Date: 20130225
  Transmission Date: 20140127
  Serious: Yes (Other)
  Sender: FDA-Public Use
  Company Number: AU-JNJFOC-20110905379

PATIENT
  Sex: Male
  Weight: 110 kg

DRUGS (1)
  1. STELARA [Suspect]
     Indication: PSORIASIS
     Route: 058
     Dates: start: 201007, end: 201210

REACTIONS (2)
  - Hepatitis chronic active [Not Recovered/Not Resolved]
  - Hepatic failure [Not Recovered/Not Resolved]
